FAERS Safety Report 7712830-9 (Version None)
Quarter: 2011Q3

REPORT INFORMATION
  Report Type: 
  Country: None (occurrence: None)
  Receive Date: 20110826
  Receipt Date: 20110818
  Transmission Date: 20111222
  Serious: Yes (Hospitalization)
  Sender: FDA-Public Use
  Company Number: PHEH2011US02032

PATIENT
  Sex: Male
  Weight: 60.771 kg

DRUGS (1)
  1. EXJADE [Suspect]
     Indication: SICKLE CELL ANAEMIA
     Dosage: 1250 MG, DAILY
     Route: 048
     Dates: start: 20090821

REACTIONS (1)
  - MUSCULOSKELETAL DISCOMFORT [None]
